FAERS Safety Report 10149972 (Version 5)
Quarter: 2022Q1

REPORT INFORMATION
  Report Type: Spontaneous
  Country: GB (occurrence: GB)
  Receive Date: 20140502
  Receipt Date: 20220228
  Transmission Date: 20220423
  Serious: Yes (Life-Threatening, Other)
  Sender: FDA-Public Use
  Company Number: None

PATIENT
  Age: 23 Year
  Sex: Male
  Weight: 88.9 kg

DRUGS (5)
  1. PROPRANOLOL HYDROCHLORIDE [Interacting]
     Active Substance: PROPRANOLOL HYDROCHLORIDE
     Route: 065
  2. OLANZAPINE [Interacting]
     Active Substance: OLANZAPINE
     Indication: Sleep disorder
     Route: 065
  3. CLONAZEPAM [Interacting]
     Active Substance: CLONAZEPAM
     Indication: Anxiety
     Dosage: RARELY USED.
     Route: 065
  4. PREGABALIN [Interacting]
     Active Substance: PREGABALIN
     Indication: Anxiety disorder
     Dosage: 300 MILLIGRAM DAILY; 100MG IN THE MORNING 200MG IN THE EVENING
     Route: 048
     Dates: start: 20131201
  5. SERTRALINE [Concomitant]
     Active Substance: SERTRALINE HYDROCHLORIDE
     Route: 065

REACTIONS (16)
  - Memory impairment [Not Recovered/Not Resolved]
  - Speech disorder [Not Recovered/Not Resolved]
  - Drug interaction [Unknown]
  - Fluid retention [Recovering/Resolving]
  - Disturbance in attention [Recovering/Resolving]
  - Amnesia [Recovering/Resolving]
  - Asthenia [Recovering/Resolving]
  - Paraesthesia [Recovering/Resolving]
  - Abdominal pain [Recovering/Resolving]
  - Dyspnoea [Recovering/Resolving]
  - Chest discomfort [Recovering/Resolving]
  - Photosensitivity reaction [Recovering/Resolving]
  - Depressed level of consciousness [Recovering/Resolving]
  - Sleep apnoea syndrome [Recovering/Resolving]
  - Angioedema [Recovered/Resolved]
  - Medication error [Recovering/Resolving]

NARRATIVE: CASE EVENT DATE: 20131201
